FAERS Safety Report 23871861 (Version 2)
Quarter: 2024Q2

REPORT INFORMATION
  Report Type: Spontaneous
  Country: US (occurrence: US)
  Receive Date: 20240520
  Receipt Date: 20240527
  Transmission Date: 20240716
  Serious: Yes (Hospitalization, Other)
  Sender: FDA-Public Use
  Company Number: US-TWI PHARMACEUTICAL, INC-2024SCTW000089

PATIENT

DRUGS (17)
  1. FLUOXETINE [Interacting]
     Active Substance: FLUOXETINE HYDROCHLORIDE
     Indication: Product used for unknown indication
     Dosage: 60 MG, DAILY
     Route: 065
  2. FLUOXETINE [Interacting]
     Active Substance: FLUOXETINE HYDROCHLORIDE
     Dosage: 20 MG TO 40 MG, ON AND OFF, QD
     Route: 048
     Dates: start: 20210511, end: 20230913
  3. QUETIAPINE [Interacting]
     Active Substance: QUETIAPINE
     Indication: Arthralgia
     Dosage: 400 MG, DAILY
     Route: 065
  4. QUETIAPINE [Interacting]
     Active Substance: QUETIAPINE
     Dosage: 300 MG BEDTIME DAILY
     Route: 065
  5. QUETIAPINE [Interacting]
     Active Substance: QUETIAPINE
     Dosage: 600 MG, DAILY
     Route: 065
     Dates: start: 20210511, end: 20230913
  6. QUETIAPINE [Interacting]
     Active Substance: QUETIAPINE
     Dosage: 500 MG TO 800 MG, DAILY, ON AND OFF
     Route: 048
     Dates: start: 20210511, end: 20230913
  7. TRAZODONE [Interacting]
     Active Substance: TRAZODONE HYDROCHLORIDE
     Indication: Product used for unknown indication
     Dosage: 50 MG, PRN AT BED TIME, ON AND OFF, AS NEEDED
     Route: 048
     Dates: start: 20210511, end: 20230626
  8. HYDROXYZINE [Suspect]
     Active Substance: HYDROXYZINE HYDROCHLORIDE
     Indication: Anxiety
     Dosage: 50 MG, EVERY 4 HOURS, PRN
     Route: 065
  9. CEPHALEXIN [Concomitant]
     Active Substance: CEPHALEXIN
     Indication: Cellulitis
     Dosage: 500 MG, EVERY 6 HOURS
     Route: 065
  10. DIPHENHYDRAMINE [Concomitant]
     Active Substance: DIPHENHYDRAMINE
     Indication: Agitation
     Dosage: 50 MG, UNKNOWN
     Route: 048
  11. HALOPERIDOL [Concomitant]
     Active Substance: HALOPERIDOL
     Indication: Agitation
     Dosage: 5 MG, UNKNOWN
     Route: 048
  12. LORAZEPAM [Concomitant]
     Active Substance: LORAZEPAM
     Indication: Agitation
     Dosage: 2 MG, UNKNOWN
     Route: 048
  13. METHAMPHETAMINE [Concomitant]
     Active Substance: METHAMPHETAMINE
     Indication: Product used for unknown indication
     Dosage: 5 TO 6 TIMES A WEEK (1 WK)
     Route: 065
  14. ACETAMINOPHEN [Concomitant]
     Active Substance: ACETAMINOPHEN
     Indication: Arthralgia
     Dosage: 650 MG, EVERY 4 HOURS AS NEEDED
     Route: 065
  15. SEROQUEL [Concomitant]
     Active Substance: QUETIAPINE FUMARATE
     Indication: Product used for unknown indication
     Dosage: 400 MG, UNKNOWN
     Route: 065
  16. EFFEXOR [Concomitant]
     Active Substance: VENLAFAXINE HYDROCHLORIDE
     Indication: Product used for unknown indication
     Dosage: 75 MG, UNKNOWN
     Route: 065
     Dates: start: 20240102
  17. PROZAC [Concomitant]
     Active Substance: FLUOXETINE HYDROCHLORIDE
     Indication: Product used for unknown indication
     Dosage: UNK
     Route: 065
     Dates: end: 20240102

REACTIONS (2)
  - Drug interaction [Recovered/Resolved]
  - Priapism [Recovered/Resolved]

NARRATIVE: CASE EVENT DATE: 20230626
